FAERS Safety Report 7299290-X (Version None)
Quarter: 2011Q1

REPORT INFORMATION
  Report Type: 
  Country: None (occurrence: None)
  Receive Date: 20110217
  Receipt Date: 20110204
  Transmission Date: 20110831
  Serious: Yes (Hospitalization)
  Sender: FDA-Public Use
  Company Number: GB-ELI_LILLY_AND_COMPANY-GB201102001465

PATIENT
  Sex: Male

DRUGS (2)
  1. CISPLATIN [Concomitant]
  2. ALIMTA [Suspect]
     Indication: ADENOCARCINOMA

REACTIONS (1)
  - CARDIAC FAILURE [None]
